FAERS Safety Report 13821825 (Version 1)
Quarter: 2017Q3

REPORT INFORMATION
  Report Type: Report from Study
  Country: US (occurrence: US)
  Receive Date: 20170801
  Receipt Date: 20170801
  Transmission Date: 20171127
  Serious: No
  Sender: FDA-Public Use
  Company Number: US-AMGEN-USASL2017111901

PATIENT
  Age: 76 Year
  Sex: Female

DRUGS (1)
  1. ENBREL [Suspect]
     Active Substance: ETANERCEPT
     Indication: PSORIASIS
     Dosage: UNK
     Route: 065

REACTIONS (6)
  - Musculoskeletal pain [Unknown]
  - Rash [Not Recovered/Not Resolved]
  - Rash vesicular [Not Recovered/Not Resolved]
  - Burning sensation [Not Recovered/Not Resolved]
  - Myalgia [Unknown]
  - Onycholysis [Not Recovered/Not Resolved]

NARRATIVE: CASE EVENT DATE: 201707
